FAERS Safety Report 7981238-3 (Version None)
Quarter: 2011Q4

REPORT INFORMATION
  Report Type: 
  Country: None (occurrence: None)
  Receive Date: 20111215
  Receipt Date: 20111213
  Transmission Date: 20120403
  Serious: No
  Sender: FDA-Public Use
  Company Number: US-PFIZER INC-2011303897

PATIENT
  Sex: Female
  Weight: 87.075 kg

DRUGS (5)
  1. MAXZIDE [Concomitant]
     Dosage: UNK
  2. TENORMIN [Concomitant]
     Dosage: 50 MG, UNK
  3. DIOVAN [Concomitant]
     Indication: HYPERTENSION
     Dosage: UNK
  4. ASPIRIN [Concomitant]
     Indication: THROMBOSIS
     Dosage: UNK
  5. LIPITOR [Suspect]
     Indication: BLOOD CHOLESTEROL INCREASED
     Dosage: 20 MG, 1X/DAY
     Route: 048

REACTIONS (3)
  - DRUG DOSE OMISSION [None]
  - MUSCULOSKELETAL DISCOMFORT [None]
  - DIARRHOEA [None]
